FAERS Safety Report 9989170 (Version 2)
Quarter: 2014Q2

REPORT INFORMATION
  Report Type: Spontaneous
  Country: GB (occurrence: GB)
  Receive Date: 20140310
  Receipt Date: 20140531
  Transmission Date: 20141212
  Serious: Yes (Other)
  Sender: FDA-Public Use
  Company Number: 2014SP001145

PATIENT
  Age: 26 Year
  Sex: Male

DRUGS (9)
  1. METHOTREXATE [Suspect]
     Indication: OSTEOSARCOMA
     Dates: start: 20130412
  2. METHOTREXATE [Suspect]
     Indication: OSTEOSARCOMA
     Dates: start: 20130513
  3. METHOTREXATE [Suspect]
     Indication: OSTEOSARCOMA
     Dates: start: 20130701
  4. METHOTREXATE [Suspect]
     Indication: OSTEOSARCOMA
     Dates: start: 20130726
  5. METHOTREXATE [Suspect]
     Indication: OSTEOSARCOMA
     Dates: start: 20130820
  6. METHOTREXATE [Suspect]
     Indication: OSTEOSARCOMA
     Dates: start: 20130828
  7. MIFAMURTIDE [Suspect]
     Indication: OSTEOSARCOMA
     Dates: start: 20130822, end: 20130906
  8. CISPLATIN [Concomitant]
     Dates: start: 20130412
  9. DOXORUBICIN [Concomitant]
     Dates: start: 20130412

REACTIONS (6)
  - Demyelination [Recovered/Resolved]
  - Chills [Unknown]
  - Confusional state [Recovered/Resolved]
  - Aphasia [Recovered/Resolved]
  - Toxicity to various agents [Unknown]
  - Neurotoxicity [Recovered/Resolved]
